FAERS Safety Report 6818525-8 (Version None)
Quarter: 2010Q3

REPORT INFORMATION
  Report Type: 
  Country: None (occurrence: None)
  Receive Date: 20100706
  Receipt Date: 20080804
  Transmission Date: 20110219
  Serious: Yes (Other)
  Sender: FDA-Public Use
  Company Number: US-PFIZER INC-2008049411

PATIENT
  Sex: Male
  Weight: 32.7 kg

DRUGS (2)
  1. ZITHROMAX [Suspect]
     Indication: COUGH
     Dates: start: 20080609
  2. ZITHROMAX [Suspect]
     Indication: PNEUMONIA

REACTIONS (3)
  - DEAFNESS UNILATERAL [None]
  - EAR DISORDER [None]
  - HEADACHE [None]
